FAERS Safety Report 8788255 (Version 2)
Quarter: 2012Q4

REPORT INFORMATION
  Report Type: 
  Country: BR (occurrence: BR)
  Receive Date: 20120914
  Receipt Date: 20121010
  Transmission Date: 20130627
  Serious: Yes (Other)
  Sender: FDA-Public Use
  Company Number: CHPA2012BR019660

PATIENT
  Age: 49 Year
  Sex: Female

DRUGS (2)
  1. OTRIVINA [Suspect]
     Indication: RHINITIS
     Dosage: Unk, Unk
     Route: 045
     Dates: start: 201207
  2. OTRIVINA [Suspect]
     Indication: RHINITIS
     Dosage: 1 DF, TID at most
     Route: 045
     Dates: start: 201207

REACTIONS (3)
  - Bunion [Recovered/Resolved]
  - Product quality issue [None]
  - Drug ineffective [None]
